FAERS Safety Report 13562889 (Version 1)
Quarter: 2017Q2

REPORT INFORMATION
  Report Type: Spontaneous
  Country: US (occurrence: US)
  Receive Date: 20170519
  Receipt Date: 20170519
  Transmission Date: 20170830
  Serious: No
  Sender: FDA-Public Use
  Company Number: US-JNJFOC-20170334665

PATIENT
  Sex: Female
  Weight: 58.97 kg

DRUGS (1)
  1. VISINE A [Suspect]
     Active Substance: NAPHAZOLINE HYDROCHLORIDE\PHENIRAMINE MALEATE
     Indication: PRODUCT USED FOR UNKNOWN INDICATION
     Dosage: 1 OR 2 DROPS IN EACH EYE, 2 TIMES DAILY
     Route: 047

REACTIONS (2)
  - Abnormal sensation in eye [Unknown]
  - Drug ineffective [Unknown]
